FAERS Safety Report 4950162-2 (Version None)
Quarter: 2006Q1

REPORT INFORMATION
  Report Type: 
  Country: None (occurrence: None)
  Receive Date: 20060322
  Receipt Date: 20060313
  Transmission Date: 20060701
  Serious: Yes (Hospitalization)
  Sender: FDA-Public Use
  Company Number: BE-JNJFOC-20060303239

PATIENT
  Age: 9 Year
  Sex: Male

DRUGS (3)
  1. REMICADE [Suspect]
     Indication: COLITIS ULCERATIVE
     Route: 042
  2. IMURAN [Concomitant]
     Indication: COLITIS ULCERATIVE
  3. CLAVERSAL [Concomitant]
     Indication: COLITIS ULCERATIVE

REACTIONS (2)
  - HAEMATOCHEZIA [None]
  - INFLUENZA [None]
